FAERS Safety Report 6698004-1 (Version None)
Quarter: 2010Q2

REPORT INFORMATION
  Report Type: 
  Country: None (occurrence: None)
  Receive Date: 20100427
  Receipt Date: 20100415
  Transmission Date: 20101027
  Serious: Yes (Other)
  Sender: FDA-Public Use
  Company Number: US-JNJFOC-20090905444

PATIENT
  Age: 47 Year
  Sex: Female

DRUGS (6)
  1. REMICADE [Suspect]
     Indication: CROHN'S DISEASE
     Route: 042
  2. HEPARIN [Suspect]
     Indication: INTRAVENOUS CATHETER MANAGEMENT
  3. COX-2 SELECTIVE INHIBITOR [Suspect]
     Indication: DRUG USE FOR UNKNOWN INDICATION
  4. BENADRYL [Concomitant]
  5. OXYCODONE HCL [Concomitant]
     Indication: PALLIATIVE CARE
  6. MORPHINE SULFATE [Concomitant]
     Indication: PALLIATIVE CARE

REACTIONS (13)
  - BLINDNESS [None]
  - BRAIN NEOPLASM [None]
  - FUNGAL INFECTION [None]
  - HAEMORRHAGIC DISORDER [None]
  - HEART RATE INCREASED [None]
  - HYPOAESTHESIA [None]
  - NEOPLASM MALIGNANT [None]
  - PYREXIA [None]
  - RABIES [None]
  - RASH [None]
  - SERUM SICKNESS [None]
  - SKIN ATROPHY [None]
  - VOMITING [None]
